FAERS Safety Report 4521595-3 (Version None)
Quarter: 2004Q4

REPORT INFORMATION
  Report Type: 
  Country: None (occurrence: None)
  Receive Date: 20041208
  Receipt Date: 20041208
  Transmission Date: 20050328
  Serious: No
  Sender: FDA-Public Use
  Company Number: None

PATIENT
  Sex: Female
  Weight: 112.9457 kg

DRUGS (6)
  1. THALIDOMIDE   50MG   CELEGENE [Suspect]
     Indication: MULTIPLE MYELOMA
     Dosage: 150 MG DAILY  ORAL
     Route: 048
     Dates: start: 20030301, end: 20041020
  2. CITALOPRAM [Concomitant]
  3. LEVOTHYROXINE SODIUM [Concomitant]
  4. BENAZAPRIL [Concomitant]
  5. OXYCODONE HCL [Concomitant]
  6. FENTANYL [Concomitant]

REACTIONS (1)
  - PULMONARY HYPERTENSION [None]
